FAERS Safety Report 18188916 (Version 2)
Quarter: 2020Q3

REPORT INFORMATION
  Report Type: Not Available
  Country: US (occurrence: US)
  Receive Date: 20200824
  Receipt Date: 20200924
  Transmission Date: 20201103
  Serious: Yes (Other)
  Sender: FDA-Public Use
  Company Number: US-NEUROCRINE BIOSCIENCES INC.-2020NBI02967

PATIENT
  Age: 89 Year
  Sex: Female
  Weight: 52.21 kg

DRUGS (15)
  1. BUTRANS [Concomitant]
     Active Substance: BUPRENORPHINE
     Dosage: 15 MCG/HR PATCH
     Route: 062
  2. EXELON [Concomitant]
     Active Substance: RIVASTIGMINE TARTRATE
     Dosage: 4.6MG/24HR PATCH
     Route: 062
  3. MIRALAX [Concomitant]
     Active Substance: POLYETHYLENE GLYCOL 3350
     Dosage: 1 PACKET MIXED WITH 8 OUNCES OF FLUID ONCE DAILY
     Route: 048
  4. PANTOPRAZOLE SODIUM. [Concomitant]
     Active Substance: PANTOPRAZOLE SODIUM
     Route: 048
  5. VITAMIN C [Concomitant]
     Active Substance: ASCORBIC ACID
     Dosage: AS DIRECTED
     Route: 048
  6. LEVOTHYROXINE SODIUM. [Concomitant]
     Active Substance: LEVOTHYROXINE SODIUM
     Dosage: 1 TABLET ON AN EMPTY STOMACH IN THE MORNING
     Route: 048
  7. CITRACAL PLUS [Concomitant]
     Active Substance: CALCIUM\MAGNESIUM\VITAMIN D\ZINC
     Dosage: AS DIRECTED
     Route: 048
  8. CYMBALTA [Concomitant]
     Active Substance: DULOXETINE HYDROCHLORIDE
     Dosage: CAPSULE DELAYED RELEASE PARTICLES
     Route: 048
  9. ZINC. [Concomitant]
     Active Substance: ZINC
     Route: 048
  10. DEBROX [Concomitant]
     Active Substance: CARBAMIDE PEROXIDE
     Dosage: 5 DROPS INTO AFFECTED EAR TWICE DAILY
     Route: 001
  11. CARBIDOPA?LEVODOPA [Concomitant]
     Active Substance: CARBIDOPA\LEVODOPA
     Dosage: 50?200MG EXTENDED RELEASE
     Route: 048
  12. INGREZZA [Suspect]
     Active Substance: VALBENAZINE
     Indication: TARDIVE DYSKINESIA
     Route: 048
     Dates: start: 20190401
  13. BIOTIN [Concomitant]
     Active Substance: BIOTIN
     Route: 048
  14. NAMENDA [Concomitant]
     Active Substance: MEMANTINE HYDROCHLORIDE
     Route: 048
  15. TOBRAMYCIN. [Concomitant]
     Active Substance: TOBRAMYCIN
     Dosage: 1 DROP INTO AFFECTED EYE EVERY 4 HOURS
     Route: 047

REACTIONS (5)
  - Wound infection [Unknown]
  - Femur fracture [Unknown]
  - Fall [Recovered/Resolved]
  - Disturbance in attention [Unknown]
  - Toxic encephalopathy [Recovered/Resolved]
